FAERS Safety Report 22074342 (Version 2)
Quarter: 2023Q1

REPORT INFORMATION
  Report Type: Spontaneous
  Country: US (occurrence: US)
  Receive Date: 20230308
  Receipt Date: 20230331
  Transmission Date: 20230418
  Serious: No
  Sender: FDA-Public Use
  Company Number: US-PFIZER INC-202300094104

PATIENT
  Age: 73 Year
  Sex: Female
  Weight: 58.97 kg

DRUGS (10)
  1. PAXLOVID [Suspect]
     Active Substance: NIRMATRELVIR\RITONAVIR
     Indication: COVID-19 treatment
     Dosage: [PF-07321332 300 MG]/[RITONAVIR 100 MG]; 2X/DAY
     Dates: start: 20230302
  2. SIMVASTATIN [Concomitant]
     Active Substance: SIMVASTATIN
     Indication: Blood cholesterol increased
     Dosage: UNK (DOCTOR TOLD CANNOT TAKE IT WITH THE PAXLOVID SO HAD TO STOP TAKING IT)
     Dates: end: 20230301
  3. ALBUTEROL [Concomitant]
     Active Substance: ALBUTEROL
     Indication: Dyspnoea
     Dosage: UNK (START: NUMBER OF YEARS AGO: TWO PUFFS EVERY SIX HOURS)
     Route: 055
  4. AMLODIPINE [Concomitant]
     Active Substance: AMLODIPINE BESYLATE
     Indication: Blood pressure increased
     Dosage: 10 MG, DAILY
  5. BUPROPION HYDROCHLORIDE XL [Concomitant]
     Active Substance: BUPROPION HYDROCHLORIDE
     Indication: Anxiety
     Dosage: 150 MG, DAILY
  6. FAMOTIDINE [Concomitant]
     Active Substance: FAMOTIDINE
     Indication: Gastrooesophageal reflux disease
     Dosage: 40 MG, 1X/DAY (AT BEDTIME DAILY)
  7. GABAPENTIN [Concomitant]
     Active Substance: GABAPENTIN
     Indication: Paraesthesia
     Dosage: 100 MG, AS NEEDED (2X/DAY AS NEEDED)
  8. GABAPENTIN [Concomitant]
     Active Substance: GABAPENTIN
     Indication: Pain in extremity
  9. OTEZLA [Concomitant]
     Active Substance: APREMILAST
     Indication: Psoriasis
     Dosage: 300 MG, 2X/DAY
  10. TRAVOPROST [Concomitant]
     Active Substance: TRAVOPROST
     Dosage: 1 DROP, DAILY NIGHTLY IN BOTH EYES

REACTIONS (2)
  - Dysgeusia [Not Recovered/Not Resolved]
  - Parosmia [Unknown]

NARRATIVE: CASE EVENT DATE: 20230301
